FAERS Safety Report 6362074-0 (Version None)
Quarter: 2009Q3

REPORT INFORMATION
  Report Type: 
  Country: None (occurrence: None)
  Receive Date: 20090918
  Receipt Date: 20090909
  Transmission Date: 20100115
  Serious: Yes (Other)
  Sender: FDA-Public Use
  Company Number: PHEH2007US13367

PATIENT
  Sex: Male
  Weight: 101.59 kg

DRUGS (14)
  1. ZOMETA [Suspect]
     Indication: MULTIPLE MYELOMA
     Dosage: 4 MG, QW4
     Route: 042
     Dates: end: 20060801
  2. THALIDOMIDE [Concomitant]
     Dosage: 200 MG, QD
     Route: 048
  3. ALLOPURINOL [Concomitant]
     Dosage: 100 MG, QD
     Route: 048
  4. CELEBREX [Concomitant]
     Dosage: 200 MG, UNK
     Route: 048
  5. ALLEGRA [Concomitant]
     Dosage: 60 MG, BID
  6. INTERFERON [Concomitant]
     Indication: MULTIPLE MYELOMA
     Dosage: 4 MILLION UNITS M-W-F
  7. ACYCLOVIR [Concomitant]
     Dosage: 800 MG, BID
  8. DYAZIDE [Concomitant]
     Dosage: 37.5 MG, QD
  9. HYDROCHLOROTHIAZIDE [Concomitant]
     Dosage: 25 MG, QD
  10. GEMFIBROZIL [Concomitant]
     Dosage: 600 MG, BID
  11. CHEMOTHERAPEUTICS NOS [Concomitant]
  12. RADIATION THERAPY [Concomitant]
  13. COZAAR [Concomitant]
  14. PAXIL [Concomitant]

REACTIONS (37)
  - ANAEMIA [None]
  - AORTIC STENOSIS [None]
  - AORTIC VALVE INCOMPETENCE [None]
  - ARTHRALGIA [None]
  - ATRIAL TACHYCARDIA [None]
  - BALANCE DISORDER [None]
  - BARRETT'S OESOPHAGUS [None]
  - CARDIAC MURMUR [None]
  - COUGH [None]
  - DEPRESSION [None]
  - DIARRHOEA [None]
  - DIVERTICULITIS [None]
  - DIZZINESS [None]
  - DYSGEUSIA [None]
  - DYSURIA [None]
  - EXOSTOSIS [None]
  - GASTROOESOPHAGEAL REFLUX DISEASE [None]
  - HAEMORRHOIDS [None]
  - HALLUCINATION [None]
  - HYPERCHOLESTEROLAEMIA [None]
  - HYPOACUSIS [None]
  - HYPOTHYROIDISM [None]
  - LEFT VENTRICULAR HYPERTROPHY [None]
  - MENTAL STATUS CHANGES [None]
  - MYALGIA [None]
  - MYELOMA RECURRENCE [None]
  - OSTEONECROSIS [None]
  - REFLUX OESOPHAGITIS [None]
  - RENAL IMPAIRMENT [None]
  - SEBORRHOEIC DERMATITIS [None]
  - SINUS CONGESTION [None]
  - SQUAMOUS CELL CARCINOMA OF SKIN [None]
  - STEM CELL TRANSPLANT [None]
  - SYNCOPE [None]
  - THROMBOTIC THROMBOCYTOPENIC PURPURA [None]
  - TINNITUS [None]
  - UMBILICAL HERNIA [None]
